FAERS Safety Report 10080845 (Version 1)
Quarter: 2014Q2

REPORT INFORMATION
  Report Type: Spontaneous
  Country: US (occurrence: None)
  Receive Date: 20140415
  Receipt Date: 20140415
  Transmission Date: 20141212
  Serious: Yes (Other)
  Sender: FDA-Public Use
  Company Number: None

PATIENT
  Sex: Female
  Weight: 48.99 kg

DRUGS (8)
  1. WARFARIN [Suspect]
     Indication: ATRIAL FLUTTER
     Dosage: ONE PO EVERY MON + FRI?1 1/2 PO EVERY T, W,T, F, S LAST 6 MONTHS
     Route: 048
  2. ASPIRIN [Concomitant]
  3. TOPROL [Concomitant]
  4. NEXIUM [Concomitant]
  5. ATACAND [Concomitant]
  6. LASIX [Concomitant]
  7. SPIRONOLACTONE [Concomitant]
  8. XANAX [Concomitant]

REACTIONS (3)
  - Abdominal discomfort [None]
  - Nausea [None]
  - Vomiting [None]
